FAERS Safety Report 8662856 (Version 2)
Quarter: 2013Q1

REPORT INFORMATION
  Report Type: Spontaneous
  Country: BR (occurrence: BR)
  Receive Date: 20120712
  Receipt Date: 20130128
  Transmission Date: 20140127
  Serious: Yes (Other)
  Sender: FDA-Public Use
  Company Number: PHHY2012BR059003

PATIENT
  Sex: Female

DRUGS (3)
  1. BUFFERIN [Suspect]
     Indication: HYPOTENSION
     Dosage: 1 DF, DAILY DOSE
     Route: 048
  2. BUFFERIN [Suspect]
     Indication: CARDIAC DISORDER
  3. LYRICA [Concomitant]
     Indication: PAIN
     Dosage: 3 DF, PER MONTH

REACTIONS (3)
  - Chondropathy [Not Recovered/Not Resolved]
  - Arthralgia [Not Recovered/Not Resolved]
  - Incorrect drug administration duration [Unknown]
